FAERS Safety Report 17513875 (Version 1)
Quarter: 2020Q1

REPORT INFORMATION
  Report Type: Spontaneous
  Country: ES (occurrence: US)
  Receive Date: 20200306
  Receipt Date: 20200306
  Transmission Date: 20200409
  Serious: Yes (Other)
  Sender: FDA-Public Use
  Company Number: ES-HALOZYME THERAPEUTICS, INC.-2020-US-HYL-00506

PATIENT

DRUGS (4)
  1. HYLENEX RECOMBINANT [Suspect]
     Active Substance: HYALURONIDASE (HUMAN RECOMBINANT)
  2. LIDOCAINE. [Concomitant]
     Active Substance: LIDOCAINE
     Dosage: 4 UNK
  3. HYDROCORTISONE. [Concomitant]
     Active Substance: HYDROCORTISONE
  4. DEXCHLORPHENIRAMINE [Concomitant]
     Active Substance: DEXCHLORPHENIRAMINE

REACTIONS (7)
  - Eyelid oedema [None]
  - Visual field defect [None]
  - Extraocular muscle paresis [Recovered/Resolved]
  - Papilloedema [None]
  - Hypersensitivity [None]
  - Optic atrophy [None]
  - Conjunctival oedema [Recovered/Resolved]
